FAERS Safety Report 6989698-1 (Version None)
Quarter: 2010Q3

REPORT INFORMATION
  Report Type: 
  Country: None (occurrence: None)
  Receive Date: 20100916
  Receipt Date: 20100210
  Transmission Date: 20110219
  Serious: Yes (Other)
  Sender: FDA-Public Use
  Company Number: US-PFIZER INC-2010018238

PATIENT
  Sex: Female

DRUGS (8)
  1. LYRICA [Suspect]
     Indication: MULTIPLE SCLEROSIS
     Dosage: 25 MG, UNK
     Route: 048
     Dates: start: 20100101
  2. LYRICA [Suspect]
     Indication: ATROPHY
     Dosage: 75 MG, 2X/DAY
  3. FENTANYL [Concomitant]
     Dosage: 75 MG, ALTERNATE DAY
  4. DIAZEPAM [Concomitant]
     Dosage: UNK
  5. DETROL LA [Concomitant]
     Dosage: UNK, AS NEEDED
  6. PERCOCET [Concomitant]
     Dosage: 10/325 AS NEEDED UP TO FOUR TIMES A DAY.
  7. VALTREX [Concomitant]
     Dosage: UNK, DAILY
  8. FLUCONAZOLE [Concomitant]
     Indication: ORAL CANDIDIASIS
     Dosage: UNK

REACTIONS (16)
  - ATROPHY [None]
  - BURNING SENSATION [None]
  - CLAUSTROPHOBIA [None]
  - CONSTIPATION [None]
  - DRUG INEFFECTIVE [None]
  - FAECALOMA [None]
  - FALL [None]
  - FEELING HOT [None]
  - GAIT DISTURBANCE [None]
  - INSOMNIA [None]
  - OEDEMA PERIPHERAL [None]
  - PAIN [None]
  - PERIPHERAL COLDNESS [None]
  - SOMNOLENCE [None]
  - STICKY SKIN [None]
  - VISUAL IMPAIRMENT [None]
